FAERS Safety Report 7622745-2 (Version None)
Quarter: 2011Q3

REPORT INFORMATION
  Report Type: 
  Country: None (occurrence: None)
  Receive Date: 20110701
  Receipt Date: 20100728
  Transmission Date: 20111222
  Serious: Yes (Hospitalization)
  Sender: FDA-Public Use
  Company Number: 7012766

PATIENT
  Age: 60 Year
  Sex: Female

DRUGS (1)
  1. REBIF [Suspect]
     Indication: MULTIPLE SCLEROSIS
     Dosage: SUBCUTANEOUS
     Route: 058
     Dates: start: 20020817, end: 20090101

REACTIONS (6)
  - ATRIAL FIBRILLATION [None]
  - ANAEMIA [None]
  - URINARY TRACT INFECTION [None]
  - HYPERTENSION [None]
  - PNEUMONIA [None]
  - HEPATIC CIRRHOSIS [None]
